FAERS Safety Report 21349951 (Version 1)
Quarter: 2022Q3

REPORT INFORMATION
  Report Type: Spontaneous
  Country: US (occurrence: None)
  Receive Date: 20220917
  Receipt Date: 20220917
  Transmission Date: 20221027
  Serious: No
  Sender: FDA-Public Use
  Company Number: None

PATIENT
  Age: 70 Year
  Sex: Female

DRUGS (3)
  1. LENALIDOMIDE [Suspect]
     Active Substance: LENALIDOMIDE
     Indication: Benign hepatic neoplasm
     Dosage: 5MG DAILY ORAL?
     Route: 048
     Dates: start: 20220622
  2. DEXAMETHASONE [Concomitant]
     Active Substance: DEXAMETHASONE
  3. XGEVA [Concomitant]
     Active Substance: DENOSUMAB

REACTIONS (2)
  - Abdominal distension [None]
  - Therapy change [None]

NARRATIVE: CASE EVENT DATE: 20220623
